FAERS Safety Report 24248187 (Version 5)
Quarter: 2024Q4

REPORT INFORMATION
  Report Type: Spontaneous
  Country: FR (occurrence: FR)
  Receive Date: 20240826
  Receipt Date: 20241001
  Transmission Date: 20250115
  Serious: Yes (Hospitalization)
  Sender: SANDOZ
  Company Number: FR-SANDOZ-SDZ2024FR074709

PATIENT
  Age: 67 Year
  Sex: Male

DRUGS (18)
  1. ACETAMINOPHEN [Suspect]
     Active Substance: ACETAMINOPHEN
     Dosage: 1 G, QD, 1?2 G DAILY FOR 6 MONTHS
     Route: 065
  2. ACETAMINOPHEN [Suspect]
     Active Substance: ACETAMINOPHEN
     Indication: Osteoarthritis
     Dosage: 2 G, QD, 1?2 G DAILY FOR 6 MONTHS
     Route: 065
  3. MORPHINE SULFATE [Concomitant]
     Active Substance: MORPHINE SULFATE
     Indication: Osteoarthritis
     Dosage: 10 MG, QD
     Route: 065
  4. ASPIRIN [Concomitant]
     Active Substance: ASPIRIN
     Indication: Osteoarthritis
     Dosage: 75 MG, QD
     Route: 065
  5. DARUNAVIR [Concomitant]
     Active Substance: DARUNAVIR
     Indication: Product used for unknown indication
     Dosage: 800 MG, Q12H
     Route: 065
  6. EMTRICITABINE [Concomitant]
     Active Substance: EMTRICITABINE
     Indication: Osteoarthritis
     Dosage: UNK, QD
     Route: 065
  7. FLUCONAZOLE [Concomitant]
     Active Substance: FLUCONAZOLE
     Dosage: 400 G, QD
     Route: 065
  8. FLUCONAZOLE [Concomitant]
     Active Substance: FLUCONAZOLE
     Indication: Osteoarthritis
     Dosage: 400 MG, QD
     Route: 065
  9. IMIPENEM [Concomitant]
     Active Substance: IMIPENEM
     Indication: Osteoarthritis
     Dosage: 1 G, TID, ION
     Route: 065
  10. INSULIN NOS [Concomitant]
     Active Substance: INSULIN NOS
     Indication: Osteoarthritis
     Dosage: UNK, SHORT ACTING
     Route: 065
  11. NEFOPAM [Concomitant]
     Active Substance: NEFOPAM
     Indication: Osteoarthritis
     Dosage: 20 MG, AS NEEDED
     Route: 065
  12. NEFOPAM [Concomitant]
     Active Substance: NEFOPAM
     Indication: Analgesic therapy
  13. ODEFSEY [Concomitant]
     Active Substance: EMTRICITABINE\RILPIVIRINE HYDROCHLORIDE\TENOFOVIR ALAFENAMIDE FUMARATE
     Indication: Product used for unknown indication
     Dosage: UNK, QD, 200/25/25 ONCE DAILY
     Route: 065
  14. RILPIVIRINE [Concomitant]
     Active Substance: RILPIVIRINE
     Indication: Osteoarthritis
     Dosage: UNK 25
     Route: 065
  15. Ritonavir LAFEPE [Concomitant]
     Indication: Osteoarthritis
     Dosage: 100 MG, Q12H
     Route: 065
  16. Ritonavir LAFEPE [Concomitant]
     Indication: Product used for unknown indication
  17. TENOFOVIR ALAFENAMIDE [Concomitant]
     Active Substance: TENOFOVIR ALAFENAMIDE
     Indication: Osteoarthritis
     Dosage: 25
     Route: 065
  18. TIVICAY [Concomitant]
     Active Substance: DOLUTEGRAVIR SODIUM
     Indication: Product used for unknown indication
     Dosage: 50 MG, Q12H
     Route: 065

REACTIONS (4)
  - Pyroglutamic acidosis [Recovered/Resolved]
  - Asthenia [Recovered/Resolved]
  - Metabolic acidosis [Recovered/Resolved]
  - Hypoalbuminaemia [Recovered/Resolved]
